FAERS Safety Report 5271476-5 (Version None)
Quarter: 2007Q1

REPORT INFORMATION
  Report Type: 
  Country: None (occurrence: None)
  Receive Date: 20070321
  Receipt Date: 20070307
  Transmission Date: 20070707
  Serious: Yes (Hospitalization)
  Sender: FDA-Public Use
  Company Number: US-SHR-US-2006-040705

PATIENT
  Age: 65 Year
  Sex: Female
  Weight: 59.864 kg

DRUGS (15)
  1. BETASERON [Suspect]
     Indication: RELAPSING-REMITTING MULTIPLE SCLEROSIS
     Route: 058
     Dates: start: 19940407, end: 20041202
  2. BETASERON [Suspect]
     Dosage: 8 MIU, EVERY 2D
     Route: 058
     Dates: start: 20041223
  3. FISH OIL [Concomitant]
     Dosage: AFTER MEALS, 3X/DAY
     Route: 048
     Dates: end: 20070214
  4. ACETYLSALICYLIC ACID SRT [Concomitant]
     Dosage: 325 MG, BED T.
     Dates: end: 20070213
  5. MEVACOR [Concomitant]
     Dosage: 40 MG/D, WITH FOOD EACH EVENING
     Route: 048
  6. PROVIGIL [Concomitant]
     Dosage: 200 MG/D,EACH AM
  7. AMANTADINE HCL [Concomitant]
     Dosage: 100 MG/D, AM
  8. ENABLEX (DARIFENACIN) [Concomitant]
     Dosage: 15 MG/D, BED T.
  9. ACYCLOVIR [Concomitant]
     Dosage: 400 MG, EVERY 12H
     Route: 048
  10. REGLAN [Concomitant]
     Dosage: 10 MG,4X/DAY,30MIN AC+HS
  11. CLONAZEPAM [Concomitant]
     Dosage: 2 MG, BED T.
     Route: 048
  12. ONE-A-DAY [Concomitant]
     Dosage: 1 TAB(S), UNK
     Route: 048
  13. ACIDOPHILUS [Concomitant]
     Dosage: 1 CAP(S), 2X/DAY, WITH MEALS
     Route: 048
  14. CRANBERRY CONCENTRATE [Concomitant]
     Dosage: UNK, 2X/DAY
     Route: 048
  15. COLACE [Concomitant]
     Dosage: 100 MG/D, BED T.
     Route: 048

REACTIONS (5)
  - ABDOMINAL PAIN UPPER [None]
  - BLADDER DISORDER [None]
  - EPISTAXIS [None]
  - SMALL INTESTINAL OBSTRUCTION [None]
  - URINARY TRACT INFECTION [None]
